FAERS Safety Report 19463706 (Version 1)
Quarter: 2021Q2

REPORT INFORMATION
  Report Type: Report from Study
  Country: US (occurrence: US)
  Receive Date: 20210625
  Receipt Date: 20210625
  Transmission Date: 20210717
  Serious: Yes (Other)
  Sender: FDA-Public Use
  Company Number: US-TAKEDA-US201834977

PATIENT
  Sex: Female

DRUGS (1)
  1. CUVITRU [Suspect]
     Active Substance: HUMAN IMMUNOGLOBULIN G
     Indication: IMMUNODEFICIENCY COMMON VARIABLE
     Route: 065

REACTIONS (6)
  - Collagen disorder [Unknown]
  - Anhidrosis [Unknown]
  - Lyme disease [Unknown]
  - Dry eye [Unknown]
  - Ehlers-Danlos syndrome [Unknown]
  - Single functional kidney [Unknown]
